FAERS Safety Report 5838776-9 (Version None)
Quarter: 2008Q3

REPORT INFORMATION
  Report Type: 
  Country: None (occurrence: None)
  Receive Date: 20080808
  Receipt Date: 20080725
  Transmission Date: 20090109
  Serious: Yes (Hospitalization)
  Sender: FDA-Public Use
  Company Number: HQWYE243116MAY07

PATIENT
  Sex: Male
  Weight: 86.4 kg

DRUGS (5)
  1. SIROLIMUS [Suspect]
     Indication: PROPHYLAXIS AGAINST TRANSPLANT REJECTION
     Route: 048
     Dates: start: 20040806
  2. ZOCOR [Concomitant]
     Indication: HYPERLIPIDAEMIA
     Route: 048
     Dates: start: 20061116
  3. COZAAR [Concomitant]
     Indication: HYPERTENSION
     Route: 048
     Dates: start: 20060811
  4. SEPTRA [Concomitant]
     Indication: INFECTION PROPHYLAXIS
     Dosage: DOSE UNKNOWN
     Route: 048
     Dates: start: 20040805
  5. TEA TREE [Concomitant]
     Indication: RASH
     Dosage: AMOUNT UNSPECIFIED, DAILY
     Route: 061
     Dates: start: 20060810

REACTIONS (1)
  - HYPERGLYCAEMIA [None]
